FAERS Safety Report 8844196 (Version 1)
Quarter: 2012Q4

REPORT INFORMATION
  Report Type: 
  Country: GB (occurrence: GB)
  Receive Date: 20121017
  Receipt Date: 20121017
  Transmission Date: 20130627
  Serious: Yes (Other)
  Sender: FDA-Public Use
  Company Number: GB-BAYER-2012-106022

PATIENT
  Sex: Male

DRUGS (2)
  1. BETAFERON [Suspect]
     Indication: MULTIPLE SCLEROSIS
     Dosage: 250 ?g, QOD
     Route: 058
  2. BETAFERON [Suspect]
     Indication: MULTIPLE SCLEROSIS
     Dosage: 250 ?g, BIW
     Route: 058

REACTIONS (2)
  - Renal impairment [None]
  - Injection site reaction [Not Recovered/Not Resolved]
